FAERS Safety Report 8906422 (Version 1)
Quarter: 2012Q4

REPORT INFORMATION
  Report Type: Spontaneous
  Country: US (occurrence: None)
  Receive Date: 20121109
  Receipt Date: 20121109
  Transmission Date: 20130627
  Serious: Yes (Other)
  Sender: FDA-Public Use
  Company Number: None

PATIENT
  Age: 79 Year
  Sex: Female

DRUGS (2)
  1. LEVETIRACETAM [Suspect]
     Indication: SEIZURE
     Route: 048
     Dates: start: 20121022, end: 20121105
  2. LEVETIRACETAM [Suspect]
     Indication: SEIZURE
     Dates: start: 20091221, end: 20121022

REACTIONS (3)
  - Product substitution issue [None]
  - Product quality issue [None]
  - Convulsion [None]
